FAERS Safety Report 23791155 (Version 1)
Quarter: 2024Q2

REPORT INFORMATION
  Report Type: Spontaneous
  Country: US (occurrence: US)
  Receive Date: 20240428
  Receipt Date: 20240428
  Transmission Date: 20240716
  Serious: Yes (Hospitalization)
  Sender: FDA-Public Use
  Company Number: US-AMGEN-USASP2024083377

PATIENT
  Age: 55 Year
  Sex: Male

DRUGS (1)
  1. RITUXIMAB [Suspect]
     Active Substance: RITUXIMAB
     Indication: Donor specific antibody present
     Dosage: UNK
     Route: 065

REACTIONS (5)
  - Sternal injury [Unknown]
  - Hyperammonaemia [Unknown]
  - Ureaplasma test positive [Unknown]
  - Intestinal ischaemia [Unknown]
  - Off label use [Unknown]
